FAERS Safety Report 17471747 (Version 1)
Quarter: 2020Q1

REPORT INFORMATION
  Report Type: Spontaneous
  Country: TR (occurrence: TR)
  Receive Date: 20200228
  Receipt Date: 20200228
  Transmission Date: 20200409
  Serious: Yes (Other)
  Sender: FDA-Public Use
  Company Number: TR-SUN PHARMACEUTICAL INDUSTRIES LTD-2018RR-186698

PATIENT
  Age: 12 Year
  Sex: Male

DRUGS (5)
  1. IMATINIB. [Suspect]
     Active Substance: IMATINIB MESYLATE
     Indication: MYELOID LEUKAEMIA
     Route: 065
  2. CETIRIZINE [Suspect]
     Active Substance: CETIRIZINE HYDROCHLORIDE
     Indication: RASH
     Dosage: 10 MILLIGRAM, UNK
     Route: 048
  3. DASATINIB. [Suspect]
     Active Substance: DASATINIB
     Dosage: 70 MILLIGRAM, DAILY, FOR 4 DAYS
     Route: 065
  4. DASATINIB. [Suspect]
     Active Substance: DASATINIB
     Indication: ACUTE LYMPHOCYTIC LEUKAEMIA
     Dosage: 70 MILLIGRAM, DAILY
     Route: 065
  5. DASATINIB. [Suspect]
     Active Substance: DASATINIB
     Dosage: 20 MILLIGRAM, UNK
     Route: 065

REACTIONS (5)
  - Drug ineffective [Unknown]
  - Neutropenia [Unknown]
  - Pain in extremity [Unknown]
  - Arthralgia [Unknown]
  - Rash erythematous [Unknown]
